FAERS Safety Report 5748630-9 (Version None)
Quarter: 2008Q2

REPORT INFORMATION
  Report Type: 
  Country: None (occurrence: None)
  Receive Date: 20080523
  Receipt Date: 20080514
  Transmission Date: 20081010
  Serious: Yes (Other)
  Sender: FDA-Public Use
  Company Number: CA-PFIZER INC-2008043109

PATIENT
  Age: 52 Year
  Sex: Female

DRUGS (6)
  1. CHANTIX [Suspect]
     Route: 048
     Dates: start: 20080328, end: 20080414
  2. AMITRIPTYLINE HCL [Concomitant]
  3. PANTOLOC ^BYK MADAUS^ [Concomitant]
  4. CRESTOR [Concomitant]
  5. DOCUSATE CALCIUM [Concomitant]
  6. VITAMINS [Concomitant]

REACTIONS (1)
  - TRIGEMINAL NEURALGIA [None]
